FAERS Safety Report 9244185 (Version 1)
Quarter: 2013Q1

REPORT INFORMATION
  Report Type: Spontaneous
  Country: US (occurrence: None)
  Receive Date: 20121123
  Receipt Date: 20121123
  Transmission Date: 20140127
  Serious: No
  Sender: FDA-Public Use
  Company Number: 363152

PATIENT
  Age: 52 Year
  Sex: Male

DRUGS (4)
  1. VICTOZA [Suspect]
     Indication: PRODUCT USED FOR UNKNOWN INDICATION
     Route: 058
  2. DIGOXIN (DIGOXIN) [Concomitant]
  3. EXFORGE (AMLODIPINE BESILATE, VALSARTAN) [Concomitant]
  4. SOTALOL [Concomitant]

REACTIONS (2)
  - Dizziness [None]
  - Nausea [None]
